FAERS Safety Report 19234540 (Version 1)
Quarter: 2021Q2

REPORT INFORMATION
  Report Type: Spontaneous
  Country: US (occurrence: US)
  Receive Date: 20210508
  Receipt Date: 20210508
  Transmission Date: 20210717
  Serious: No
  Sender: FDA-Public Use
  Company Number: US-JNJFOC-20210452246

PATIENT
  Sex: Female

DRUGS (1)
  1. MENS ROGAINE EXTRA STRENGTH [Suspect]
     Active Substance: MINOXIDIL
     Indication: PRODUCT USED FOR UNKNOWN INDICATION
     Dosage: PRODUCT STOP DATE? 23/MAR/2021
     Route: 061
     Dates: start: 20210323

REACTIONS (3)
  - Off label use [Unknown]
  - Product use issue [Unknown]
  - Product container issue [Unknown]

NARRATIVE: CASE EVENT DATE: 20210323
